FAERS Safety Report 7948653-5 (Version None)
Quarter: 2011Q4

REPORT INFORMATION
  Report Type: 
  Country: None (occurrence: None)
  Receive Date: 20111130
  Receipt Date: 20111130
  Transmission Date: 20120403
  Serious: No
  Sender: FDA-Public Use
  Company Number: None

PATIENT
  Age: 85 Year
  Sex: Female
  Weight: 78.9 kg

DRUGS (3)
  1. VANCOMYCIN [Suspect]
     Indication: PELVIC ABSCESS
     Dosage: 1 G, 1.25 G, 1.5 G
     Route: 042
     Dates: start: 20110403, end: 20110418
  2. ZOSYN [Concomitant]
     Indication: SEPSIS
  3. LASIX [Concomitant]
     Route: 042

REACTIONS (1)
  - NEPHROPATHY TOXIC [None]
